FAERS Safety Report 6688108-1 (Version None)
Quarter: 2010Q2

REPORT INFORMATION
  Report Type: 
  Country: None (occurrence: None)
  Receive Date: 20100420
  Receipt Date: 20100407
  Transmission Date: 20101027
  Serious: Yes (Hospitalization)
  Sender: FDA-Public Use
  Company Number: PHHY2010TW16092

PATIENT
  Sex: Female
  Weight: 158 kg

DRUGS (2)
  1. ZOLEDRONATE T29581++BM [Suspect]
     Indication: BREAST CANCER
     Dosage: 3.3 MG, UNK
     Route: 042
     Dates: start: 20081110, end: 20100225
  2. ZOLEDRONATE T29581++BM [Suspect]
     Indication: METASTASES TO BONE

REACTIONS (12)
  - BONE LESION [None]
  - CELLULITIS [None]
  - CHEST PAIN [None]
  - DYSPNOEA [None]
  - FACIAL PAIN [None]
  - JAW DISORDER [None]
  - LYMPHADENOPATHY [None]
  - OPEN WOUND [None]
  - OSTEOMYELITIS [None]
  - SINUS DISORDER [None]
  - SURGERY [None]
  - SWELLING FACE [None]
